FAERS Safety Report 10385722 (Version 1)
Quarter: 2014Q3

REPORT INFORMATION
  Report Type: Spontaneous
  Country: BE (occurrence: None)
  Receive Date: 20140812
  Receipt Date: 20140812
  Transmission Date: 20150326
  Serious: Yes (Life-Threatening, Other)
  Sender: FDA-Public Use
  Company Number: 2014JUB00078

PATIENT
  Age: 65 Year
  Sex: Male

DRUGS (4)
  1. ESCITALOPRAM [Suspect]
     Active Substance: ESCITALOPRAM OXALATE
     Indication: DEPRESSION
  2. SOTALOL (SOTALOL) [Suspect]
     Active Substance: SOTALOL
     Indication: ATRIAL FIBRILLATION
     Dosage: UNK
  3. TACROLIMUS (TACROLIMUS) [Suspect]
     Active Substance: TACROLIMUS
  4. OMEPRAZOLE (OMEPRAZOLE) [Suspect]
     Active Substance: OMEPRAZOLE

REACTIONS (9)
  - Apnoea [None]
  - Vomiting [None]
  - Electrocardiogram R on T phenomenon [None]
  - Loss of consciousness [None]
  - Inhibitory drug interaction [None]
  - Torsade de pointes [None]
  - Unevaluable event [None]
  - Pallor [None]
  - Hypokalaemia [None]
